FAERS Safety Report 7442743-1 (Version None)
Quarter: 2011Q2

REPORT INFORMATION
  Report Type: 
  Country: None (occurrence: None)
  Receive Date: 20110419
  Receipt Date: 20110405
  Transmission Date: 20111010
  Serious: Yes (Congenital Anomaly)
  Sender: FDA-Public Use
  Company Number: FK201100706

PATIENT
  Sex: Male

DRUGS (3)
  1. EPIRUBICIN [Suspect]
     Indication: BREAST CANCER
     Dosage: TRANSPLACENTAL
     Route: 064
  2. CYCLOPHOSPHAMIDE [Suspect]
     Indication: BREAST CANCER
     Dosage: TRANSPLACENTAL
     Route: 064
  3. FLUOROURACIL [Suspect]
     Indication: BREAST CANCER
     Dosage: TRANSPLACENTAL
     Route: 064

REACTIONS (9)
  - PHALANGEAL AGENESIS [None]
  - SYNDACTYLY [None]
  - PHALANGEAL HYPOPLASIA [None]
  - ABORTION INDUCED [None]
  - MATERNAL DRUGS AFFECTING FOETUS [None]
  - MICROGNATHIA [None]
  - CLINODACTYLY [None]
  - MICRODACTYLY [None]
  - CONGENITAL FOOT MALFORMATION [None]
